FAERS Safety Report 7580779-0 (Version None)
Quarter: 2011Q2

REPORT INFORMATION
  Report Type: 
  Country: None (occurrence: None)
  Receive Date: 20110629
  Receipt Date: 20110628
  Transmission Date: 20111010
  Serious: Yes (Other)
  Sender: FDA-Public Use
  Company Number: US-PFIZER INC-2011144068

PATIENT
  Age: 88 Year
  Sex: Female
  Weight: 72.562 kg

DRUGS (8)
  1. COUMADIN [Concomitant]
     Indication: CEREBROVASCULAR ACCIDENT PROPHYLAXIS
  2. DILANTIN [Suspect]
     Indication: CONVULSION
     Dosage: UNK
     Route: 048
     Dates: start: 19920101
  3. PHENYTOIN [Suspect]
     Indication: CONVULSION
     Dosage: UNK
  4. LOVAZA [Concomitant]
     Indication: EYE DISORDER
     Dosage: 1 G, DAILY
     Route: 048
  5. FUROSEMIDE [Concomitant]
     Indication: DIURETIC THERAPY
     Dosage: 60MG ONE AND A HALF PILL DAILY
  6. DILANTIN [Suspect]
     Dosage: 100 MG, 3X/DAY
     Route: 048
  7. LIPITOR [Concomitant]
     Indication: BLOOD CHOLESTEROL ABNORMAL
     Dosage: 20 MG, DAILY
     Route: 048
  8. COUMADIN [Concomitant]
     Indication: CARDIOMEGALY
     Dosage: 5 MG, DAILY
     Route: 048

REACTIONS (5)
  - MALAISE [None]
  - LUNG DISORDER [None]
  - CARDIOMEGALY [None]
  - CARDIAC FAILURE CONGESTIVE [None]
  - BRONCHITIS [None]
